FAERS Safety Report 14236662 (Version 8)
Quarter: 2019Q2

REPORT INFORMATION
  Report Type: Report from Study
  Country: GB (occurrence: GB)
  Receive Date: 20171129
  Receipt Date: 20190524
  Transmission Date: 20190711
  Serious: Yes (Hospitalization, Other)
  Sender: FDA-Public Use
  Company Number: GB-BRISTOL-MYERS SQUIBB COMPANY-BMS-2017-105105

PATIENT
  Age: 68 Year
  Sex: Female

DRUGS (1)
  1. ABATACEPT [Suspect]
     Active Substance: ABATACEPT
     Indication: RHEUMATOID ARTHRITIS
     Dosage: 125 MG, QWK
     Route: 058
     Dates: start: 20170428

REACTIONS (5)
  - Lower respiratory tract infection [Unknown]
  - Pain in extremity [Unknown]
  - Adverse event [Unknown]
  - Limb discomfort [Unknown]
  - Migraine [Unknown]

NARRATIVE: CASE EVENT DATE: 201812
